FAERS Safety Report 9424443 (Version 3)
Quarter: 2013Q4

REPORT INFORMATION
  Report Type: Spontaneous
  Country: US (occurrence: US)
  Receive Date: 20130729
  Receipt Date: 20131106
  Transmission Date: 20140711
  Serious: Yes (Other)
  Sender: FDA-Public Use
  Company Number: US-ASTELLAS-2013US007794

PATIENT
  Age: 78 Year
  Sex: Male

DRUGS (3)
  1. XTANDI [Suspect]
     Indication: PROSTATE CANCER METASTATIC
     Dosage: 80 MG, UID/QD
     Route: 048
     Dates: start: 20130520, end: 20130605
  2. XTANDI [Suspect]
     Dosage: 160 MG, UID/QD
     Route: 048
     Dates: start: 20130606, end: 20130706
  3. XTANDI [Suspect]
     Dosage: UNK
     Route: 048

REACTIONS (17)
  - Incorrect dose administered [Unknown]
  - Orthostatic hypotension [Recovered/Resolved]
  - Loss of consciousness [Recovered/Resolved]
  - Fall [Unknown]
  - Soft tissue injury [Unknown]
  - Osteopenia [Unknown]
  - Osteoarthritis [Unknown]
  - Bursitis [Unknown]
  - Malaise [Recovering/Resolving]
  - Arthralgia [Recovering/Resolving]
  - Oedema [Unknown]
  - Photophobia [Recovered/Resolved]
  - Extraskeletal ossification [Unknown]
  - Arteriosclerosis coronary artery [Unknown]
  - Atrioventricular block [Unknown]
  - Hip arthroplasty [Unknown]
  - Myasthenia gravis [Recovering/Resolving]
